FAERS Safety Report 20608880 (Version 6)
Quarter: 2022Q4

REPORT INFORMATION
  Report Type: Other
  Country: CA (occurrence: None)
  Receive Date: 20220317
  Receipt Date: 20221019
  Transmission Date: 20230113
  Serious: Yes (Hospitalization)
  Sender: FDA-Public Use
  Company Number: CA-ROCHE-3049770

PATIENT
  Age: 52 Year
  Sex: Female
  Weight: 74 kg

DRUGS (18)
  1. RITUXAN [Suspect]
     Active Substance: RITUXIMAB
     Indication: Rheumatoid arthritis
     Dosage: RECEIVED RITUXAN OUTSIDE OF RPAP - 7 PREVIOUS COURSES RECEIVED AS PER ENROLLMENT INFORMATION ON FILE
     Route: 042
     Dates: start: 20150302
  2. RITUXAN [Suspect]
     Active Substance: RITUXIMAB
     Dosage: DAY 1, DAY 15
     Route: 042
     Dates: start: 20160511
  3. RITUXAN [Suspect]
     Active Substance: RITUXIMAB
     Dosage: RECEIVED RITUXAN OUTSIDE OF RPAP - 7 PREVIOUS COURSES?RECEIVED AS PER ENROLLMENT INFORMATION ON FILE
     Route: 042
     Dates: end: 20150302
  4. ACETAMINOPHEN [Concomitant]
     Active Substance: ACETAMINOPHEN
     Indication: Premedication
     Route: 048
     Dates: start: 20160511
  5. ACETAMINOPHEN [Concomitant]
     Active Substance: ACETAMINOPHEN
     Route: 048
     Dates: start: 20201027
  6. ADDERALL [Concomitant]
     Active Substance: AMPHETAMINE ASPARTATE\AMPHETAMINE SULFATE\DEXTROAMPHETAMINE SACCHARATE\DEXTROAMPHETAMINE SULFATE
  7. ARAVA [Concomitant]
     Active Substance: LEFLUNOMIDE
     Dosage: POSSIBLY PLACEBO
  8. DIPHENHYDRAMINE [Concomitant]
     Active Substance: DIPHENHYDRAMINE
     Indication: Premedication
     Route: 048
     Dates: start: 20160511
  9. DIPHENHYDRAMINE [Concomitant]
     Active Substance: DIPHENHYDRAMINE
     Route: 048
     Dates: start: 20160511
  10. CELEXA [Concomitant]
     Active Substance: CITALOPRAM HYDROBROMIDE
  11. ELAVIL [Concomitant]
     Active Substance: AMITRIPTYLINE HYDROCHLORIDE
  12. HYZAAR [Concomitant]
     Active Substance: HYDROCHLOROTHIAZIDE\LOSARTAN POTASSIUM
     Indication: Hypertension
  13. LASIX [Concomitant]
     Active Substance: FUROSEMIDE
  14. LIPITOR [Concomitant]
     Active Substance: ATORVASTATIN CALCIUM
  15. SYNTHROID [Concomitant]
     Active Substance: LEVOTHYROXINE SODIUM
  16. ESCITALOPRAM [Concomitant]
     Active Substance: ESCITALOPRAM OXALATE
  17. PREDNISONE [Concomitant]
     Active Substance: PREDNISONE
     Indication: Premedication
  18. RANITIDINE [Concomitant]
     Active Substance: RANITIDINE

REACTIONS (12)
  - Respiratory failure [Unknown]
  - Pneumonia [Recovered/Resolved]
  - Infusion related reaction [Recovered/Resolved]
  - Weight fluctuation [Recovered/Resolved]
  - Arthralgia [Not Recovered/Not Resolved]
  - Decreased activity [Unknown]
  - Infusion related reaction [Recovered/Resolved]
  - Heart rate increased [Unknown]
  - Blood pressure diastolic abnormal [Unknown]
  - Blood pressure systolic abnormal [Unknown]
  - Oxygen saturation decreased [Unknown]
  - Blood pressure increased [Unknown]

NARRATIVE: CASE EVENT DATE: 20160511
